FAERS Safety Report 5212079-8 (Version None)
Quarter: 2007Q1

REPORT INFORMATION
  Report Type: 
  Country: None (occurrence: None)
  Receive Date: 20070118
  Receipt Date: 20070112
  Transmission Date: 20070707
  Serious: Yes (Other)
  Sender: FDA-Public Use
  Company Number: JP-ELI_LILLY_AND_COMPANY-JP200701003002

PATIENT
  Age: 69 Year
  Sex: Male

DRUGS (3)
  1. GEMZAR [Suspect]
     Indication: PANCREATIC CARCINOMA
     Dosage: 250 MG/M2, OTHER
     Route: 042
  2. GEMZAR [Suspect]
     Dosage: 1400 MG, OTHER
     Route: 042
     Dates: start: 20060926
  3. THERAPEUTIC RADIOPHARMACEUTICALS [Concomitant]
     Indication: PANCREATIC CARCINOMA

REACTIONS (2)
  - HYPOALBUMINAEMIA [None]
  - HYPOPROTEINAEMIA [None]
